FAERS Safety Report 20092213 (Version 1)
Quarter: 2021Q4

REPORT INFORMATION
  Report Type: Spontaneous
  Country: GB (occurrence: GB)
  Receive Date: 20211119
  Receipt Date: 20211119
  Transmission Date: 20220303
  Serious: Yes (Hospitalization)
  Sender: FDA-Public Use
  Company Number: GB-ROCHE-2897865

PATIENT
  Age: 26 Year
  Sex: Male
  Weight: 96.7 kg

DRUGS (51)
  1. DOXORUBICIN [Suspect]
     Active Substance: DOXORUBICIN
     Indication: Diffuse large B-cell lymphoma
     Dosage: (TOTAL VOLUME PRIOR AE 50 ML), ON 17/AUG/2021 AT 5:15 PM TO 5:30 PM, RECEIVED MOST RECENT DOSE,110MG
     Route: 042
     Dates: start: 20210817
  2. PREDNISOLONE [Suspect]
     Active Substance: PREDNISOLONE
     Indication: Diffuse large B-cell lymphoma
     Dosage: ON 21/AUG/2021 7:10 AM, RECEIVED MOST RECENT DOSE (100 MG) OF PREDNISOLONE PRIOR TO AE AND SAE. ON D
     Route: 048
     Dates: start: 20210818
  3. VINCRISTINE [Suspect]
     Active Substance: VINCRISTINE
     Indication: Diffuse large B-cell lymphoma
     Dosage: (TOTAL VOLUME PRIOR AE AND SAE 50 ML), ON 17/AUG/2021 AT 6:10 PM TO 6:20 PM, RECEIVED MOST RECENT DO
     Route: 042
     Dates: start: 20210817
  4. METHYLPREDNISOLONE [Suspect]
     Active Substance: METHYLPREDNISOLONE
     Indication: Diffuse large B-cell lymphoma
     Dosage: ON 17/AUG/2021 10:27 AM, MOST RECENT DOSE (80 MG) OF METHYLPREDNISOLONE PRIOR TO AE AND SAE.
     Route: 048
     Dates: start: 20210817
  5. CYCLOPHOSPHAMIDE [Suspect]
     Active Substance: CYCLOPHOSPHAMIDE
     Indication: Diffuse large B-cell lymphoma
     Dosage: (TOTAL VOLUME PRIOR AE 50 ML), ON 17/AUG/2021 AT 5:43 PM TO 6:00 PM, RECEIVED MOST RECENT DOSE (1600
     Route: 042
     Dates: start: 20210817
  6. RITUXIMAB [Suspect]
     Active Substance: RITUXIMAB
     Indication: Diffuse large B-cell lymphoma
     Dosage: (TOTAL VOLUME PRIOR AE AND SAE 500 ML)ON 17/AUG/2021 11:45 AM TO 4:45 PM, RECEIVED MOST RECENT DOSE,
     Route: 042
     Dates: start: 20210817
  7. ACYCLOVIR [Concomitant]
     Active Substance: ACYCLOVIR
     Indication: Antiviral prophylaxis
     Route: 065
     Dates: start: 20210817
  8. ALLOPURINOL [Concomitant]
     Active Substance: ALLOPURINOL
     Route: 065
     Dates: start: 20210817
  9. CHLORPHENIRAMINE MALEATE [Concomitant]
     Active Substance: CHLORPHENIRAMINE MALEATE
     Dosage: 10MG
     Route: 042
     Dates: start: 20210907, end: 20210907
  10. CHLORPHENIRAMINE MALEATE [Concomitant]
     Active Substance: CHLORPHENIRAMINE MALEATE
     Dosage: 10MG
     Route: 042
     Dates: start: 20211005, end: 20211005
  11. CHLORPHENIRAMINE MALEATE [Concomitant]
     Active Substance: CHLORPHENIRAMINE MALEATE
     Dosage: 10MG
     Route: 065
     Dates: start: 20211019, end: 20211019
  12. CHLORPHENIRAMINE MALEATE [Concomitant]
     Active Substance: CHLORPHENIRAMINE MALEATE
     Dosage: 10MG
     Route: 042
     Dates: start: 20210921, end: 20210921
  13. CHLORPHENIRAMINE MALEATE [Concomitant]
     Active Substance: CHLORPHENIRAMINE MALEATE
     Dosage: 10MG
     Route: 042
     Dates: start: 20210928, end: 20210928
  14. CHLORPHENIRAMINE MALEATE [Concomitant]
     Active Substance: CHLORPHENIRAMINE MALEATE
     Dosage: 10MG
     Route: 042
     Dates: start: 20210914, end: 20210914
  15. CHLORPHENIRAMINE MALEATE [Concomitant]
     Active Substance: CHLORPHENIRAMINE MALEATE
     Dosage: 10MG
     Route: 042
     Dates: start: 20210817, end: 20210817
  16. CIPROFLOXACIN [Concomitant]
     Active Substance: CIPROFLOXACIN
     Route: 065
     Dates: start: 20211019
  17. DEXAMETHASONE [Concomitant]
     Active Substance: DEXAMETHASONE
     Dosage: 20MG
     Route: 042
     Dates: start: 20210914, end: 20210914
  18. DEXAMETHASONE [Concomitant]
     Active Substance: DEXAMETHASONE
     Dosage: 20MG
     Route: 042
     Dates: start: 20211005, end: 20211005
  19. DEXAMETHASONE [Concomitant]
     Active Substance: DEXAMETHASONE
     Dosage: 20MG
     Route: 042
     Dates: start: 20210921, end: 20210921
  20. DEXTROSE [Concomitant]
     Active Substance: DEXTROSE
     Dosage: HYDRATION
     Route: 065
     Dates: start: 20210823, end: 20210823
  21. DOCUSATE SODIUM [Concomitant]
     Active Substance: DOCUSATE SODIUM
     Indication: Constipation
     Route: 065
     Dates: start: 20210823
  22. DOMPERIDONE [Concomitant]
     Active Substance: DOMPERIDONE
     Route: 065
     Dates: start: 20211019
  23. ENOXAPARIN [Concomitant]
     Active Substance: ENOXAPARIN
     Indication: Prophylaxis
     Route: 065
     Dates: start: 20210823, end: 20210823
  24. FILGRASTIM [Concomitant]
     Active Substance: FILGRASTIM
     Route: 065
     Dates: start: 20211019
  25. FLUCONAZOLE [Concomitant]
     Active Substance: FLUCONAZOLE
     Route: 065
     Dates: start: 20211019
  26. HYDROCORTISONE [Concomitant]
     Active Substance: HYDROCORTISONE
     Indication: Infusion related reaction
     Route: 065
     Dates: start: 20210817, end: 20210817
  27. LANSOPRAZOLE [Concomitant]
     Active Substance: LANSOPRAZOLE
     Indication: Antacid therapy
     Route: 065
     Dates: start: 20210817
  28. LANSOPRAZOLE [Concomitant]
     Active Substance: LANSOPRAZOLE
     Route: 065
     Dates: start: 20210816
  29. SODIUM CHLORIDE [Concomitant]
     Active Substance: SODIUM CHLORIDE
     Dosage: HYDRATION
     Route: 065
     Dates: start: 20210823, end: 20210823
  30. ONDANSETRON [Concomitant]
     Active Substance: ONDANSETRON
     Indication: Vomiting
     Route: 065
     Dates: start: 20210823, end: 20210823
  31. ONDANSETRON [Concomitant]
     Active Substance: ONDANSETRON
     Indication: Nausea
     Route: 065
     Dates: start: 20210817
  32. ONDANSETRON [Concomitant]
     Active Substance: ONDANSETRON
     Dosage: 8MG
     Route: 065
     Dates: start: 20211019, end: 20211019
  33. ACETAMINOPHEN [Concomitant]
     Active Substance: ACETAMINOPHEN
     Indication: Back pain
     Dosage: 1000MG
     Route: 048
     Dates: start: 20210907, end: 20210907
  34. ACETAMINOPHEN [Concomitant]
     Active Substance: ACETAMINOPHEN
     Dosage: 1000MG
     Route: 048
     Dates: start: 20211005, end: 20211005
  35. ACETAMINOPHEN [Concomitant]
     Active Substance: ACETAMINOPHEN
     Dosage: 1000MG
     Route: 048
     Dates: start: 20210921, end: 20210921
  36. ACETAMINOPHEN [Concomitant]
     Active Substance: ACETAMINOPHEN
     Dosage: 1000MG
     Route: 048
     Dates: start: 20210817, end: 20210817
  37. ACETAMINOPHEN [Concomitant]
     Active Substance: ACETAMINOPHEN
     Dosage: 1000MG
     Route: 048
     Dates: start: 20210823, end: 20210823
  38. ACETAMINOPHEN [Concomitant]
     Active Substance: ACETAMINOPHEN
     Dosage: 1000MG
     Route: 048
     Dates: start: 20210914, end: 20210914
  39. ACETAMINOPHEN [Concomitant]
     Active Substance: ACETAMINOPHEN
     Dosage: 1000MG
     Route: 065
     Dates: start: 20211019, end: 20211019
  40. ACETAMINOPHEN [Concomitant]
     Active Substance: ACETAMINOPHEN
     Dosage: 1000MG
     Route: 048
     Dates: start: 20210928, end: 20210928
  41. CHLORPHENIRAMINE MALEATE [Concomitant]
     Active Substance: CHLORPHENIRAMINE MALEATE
     Indication: Infusion related reaction
     Route: 065
     Dates: start: 20210817, end: 20210817
  42. TRUXIMA [Concomitant]
     Active Substance: RITUXIMAB-ABBS
     Dosage: 800MG
     Route: 065
     Dates: start: 20211019, end: 20211019
  43. CYCLOPHOSPHAMIDE [Concomitant]
     Active Substance: CYCLOPHOSPHAMIDE
     Indication: Premedication
     Dosage: 1600MG
     Route: 065
     Dates: start: 20211019, end: 20211019
  44. DOXORUBICIN [Concomitant]
     Active Substance: DOXORUBICIN
     Indication: Premedication
     Dosage: 110MG
     Route: 065
     Dates: start: 20211019, end: 20211019
  45. METHYLPREDNISOLONE [Concomitant]
     Active Substance: METHYLPREDNISOLONE
     Indication: Premedication
     Dosage: 80MG
     Route: 065
     Dates: start: 20211019, end: 20211019
  46. METHYLPREDNISOLONE [Concomitant]
     Active Substance: METHYLPREDNISOLONE
     Dosage: 80MG
     Route: 042
     Dates: start: 20210907, end: 20210907
  47. METHYLPREDNISOLONE [Concomitant]
     Active Substance: METHYLPREDNISOLONE
     Dosage: 80MG
     Route: 042
     Dates: start: 20210928, end: 20210928
  48. METHYLPREDNISOLONE [Concomitant]
     Active Substance: METHYLPREDNISOLONE
     Dosage: , 80MG
     Route: 042
     Dates: start: 20210817, end: 20210817
  49. PREDNISOLONE [Concomitant]
     Active Substance: PREDNISOLONE
     Indication: Lymphadenitis
     Route: 065
     Dates: start: 20210816
  50. VINCRISTINE [Concomitant]
     Active Substance: VINCRISTINE
     Indication: Premedication
     Route: 065
     Dates: start: 20211019, end: 20211019
  51. c-trimoxazole [Concomitant]

REACTIONS (1)
  - Sepsis [Recovering/Resolving]

NARRATIVE: CASE EVENT DATE: 20210823
